FAERS Safety Report 10221552 (Version 1)
Quarter: 2014Q2

REPORT INFORMATION
  Report Type: Spontaneous
  Country: US (occurrence: US)
  Receive Date: 20140606
  Receipt Date: 20140606
  Transmission Date: 20141212
  Serious: Yes (Other)
  Sender: FDA-Public Use
  Company Number: US-BAXTER-2014BAX027538

PATIENT
  Age: 3 Year
  Sex: Male

DRUGS (7)
  1. CYCLOPHOSPHAMIDE FOR INJECTION, USP [Suspect]
     Indication: STEM CELL TRANSPLANT
     Route: 065
  2. BUSULFAN [Suspect]
     Indication: STEM CELL TRANSPLANT
     Route: 065
  3. CYCLOSPORINE [Suspect]
     Indication: PROPHYLAXIS AGAINST GRAFT VERSUS HOST DISEASE
     Route: 065
  4. METHOTREXATE [Suspect]
     Indication: PROPHYLAXIS AGAINST GRAFT VERSUS HOST DISEASE
     Route: 065
  5. FLUDARABINE [Suspect]
     Indication: STEM CELL TRANSPLANT
     Route: 065
  6. CAMPATH [Suspect]
     Indication: STEM CELL TRANSPLANT
     Route: 065
  7. ROMIPLOSTIM [Suspect]
     Indication: PROPHYLAXIS
     Route: 058

REACTIONS (5)
  - Autoimmune haemolytic anaemia [Recovering/Resolving]
  - Thrombocytopenia [Recovered/Resolved]
  - Pleural effusion [Recovered/Resolved]
  - Convulsion [Recovered/Resolved]
  - Mucosal inflammation [Recovered/Resolved]
